FAERS Safety Report 4821505-5 (Version None)
Quarter: 2005Q4

REPORT INFORMATION
  Report Type: 
  Country: None (occurrence: None)
  Receive Date: 20051107
  Receipt Date: 20051031
  Transmission Date: 20060501
  Serious: Yes (Hospitalization, Other)
  Sender: FDA-Public Use
  Company Number: GB-GLAXOSMITHKLINE-B0398896A

PATIENT
  Age: 71 Year
  Sex: Male
  Weight: 63.8 kg

DRUGS (5)
  1. TIMENTIN [Suspect]
     Indication: NEUTROPENIC SEPSIS
     Dosage: 3.2G UNKNOWN
     Route: 042
     Dates: start: 20051020, end: 20051021
  2. GENTAMICIN [Concomitant]
     Indication: NEUTROPENIC SEPSIS
     Dosage: 300MG PER DAY
     Route: 042
     Dates: start: 20051019
  3. PREDNISOLONE [Concomitant]
     Indication: LYMPHOMA
     Dosage: 10MG PER DAY
     Route: 048
     Dates: start: 20051001
  4. SOTALOL [Concomitant]
     Indication: ATRIAL FIBRILLATION
     Dosage: 40MG TWICE PER DAY
     Route: 048
  5. LANSOPRAZOLE [Concomitant]
     Indication: GASTRITIS
     Dosage: 30MG PER DAY
     Route: 048

REACTIONS (3)
  - HAEMATURIA [None]
  - PAIN [None]
  - URINARY RETENTION [None]
